FAERS Safety Report 6550063-2 (Version None)
Quarter: 2010Q1

REPORT INFORMATION
  Report Type: 
  Country: None (occurrence: None)
  Receive Date: 20100125
  Receipt Date: 20100115
  Transmission Date: 20100710
  Serious: Yes (Hospitalization, Other)
  Sender: FDA-Public Use
  Company Number: ES-SANOFI-AVENTIS-2010SA002834

PATIENT
  Age: 75 Year
  Sex: Female

DRUGS (6)
  1. SEGURIL [Suspect]
     Route: 048
     Dates: start: 20090701, end: 20090801
  2. ALDACTONE [Suspect]
     Route: 048
     Dates: start: 20090701, end: 20090908
  3. DIGOXIN [Concomitant]
     Indication: ATRIAL FIBRILLATION
     Dates: start: 19990101
  4. OMEPRAZOLE [Concomitant]
     Indication: PROPHYLAXIS
     Dates: start: 20080101, end: 20090908
  5. COROPRES [Concomitant]
     Indication: HYPERTENSION
     Dates: start: 20040101
  6. SINTROM [Concomitant]
     Route: 048
     Dates: start: 19990101

REACTIONS (2)
  - ENCEPHALOPATHY [None]
  - HYPONATRAEMIA [None]
